FAERS Safety Report 19505107 (Version 1)
Quarter: 2021Q3

REPORT INFORMATION
  Report Type: Spontaneous
  Country: US (occurrence: US)
  Receive Date: 20210708
  Receipt Date: 20210708
  Transmission Date: 20211014
  Serious: No
  Sender: FDA-Public Use
  Company Number: US-ORGANON-O2107USA000083

PATIENT
  Sex: Female

DRUGS (1)
  1. NEXPLANON [Suspect]
     Active Substance: ETONOGESTREL
     Indication: CONTRACEPTION
     Dosage: ONE EVERY THREE YEARS
     Route: 059
     Dates: start: 20210618

REACTIONS (3)
  - Implant site pruritus [Unknown]
  - Implant site rash [Unknown]
  - Implant site urticaria [Unknown]

NARRATIVE: CASE EVENT DATE: 20210625
